FAERS Safety Report 12798454 (Version 1)
Quarter: 2016Q3

REPORT INFORMATION
  Report Type: Spontaneous
  Country: US (occurrence: US)
  Receive Date: 20160930
  Receipt Date: 20160930
  Transmission Date: 20161109
  Serious: Yes (Other)
  Sender: FDA-Public Use
  Company Number: US-MYLANLABS-2016M1041093

PATIENT

DRUGS (2)
  1. INDOMETACIN [Suspect]
     Active Substance: INDOMETHACIN
     Indication: PRODUCT USED FOR UNKNOWN INDICATION
     Route: 042
  2. CEFAZOLIN [Suspect]
     Active Substance: CEFAZOLIN
     Indication: PRODUCT USED FOR UNKNOWN INDICATION
     Route: 042

REACTIONS (6)
  - Leptotrichia infection [Unknown]
  - Premature labour [Unknown]
  - Amniotic cavity infection [Unknown]
  - Post procedural haemorrhage [Unknown]
  - Foetal death [Unknown]
  - Maternal exposure during pregnancy [Recovered/Resolved]
